FAERS Safety Report 5256506-9 (Version None)
Quarter: 2007Q1

REPORT INFORMATION
  Report Type: 
  Country: None (occurrence: None)
  Receive Date: 20061220
  Receipt Date: 20061024
  Transmission Date: 20070707
  Serious: Yes (Hospitalization)
  Sender: FDA-Public Use
  Company Number: 06-001227

PATIENT
  Age: 50 Year
  Sex: Female
  Weight: 77.1 kg

DRUGS (1)
  1. LOESTRIN 24 FE [Suspect]
     Indication: DYSFUNCTIONAL UTERINE BLEEDING
     Dosage: 20/1000UG, QD, ORAL
     Route: 048
     Dates: start: 20060701, end: 20060817

REACTIONS (1)
  - PULMONARY EMBOLISM [None]
